FAERS Safety Report 5166947-6 (Version None)
Quarter: 2006Q4

REPORT INFORMATION
  Report Type: 
  Country: None (occurrence: None)
  Receive Date: 20061207
  Receipt Date: 20061003
  Transmission Date: 20070319
  Serious: Yes (Hospitalization, Other)
  Sender: FDA-Public Use
  Company Number: US-ELI_LILLY_AND_COMPANY-US200610000650

PATIENT
  Age: 62 Year
  Sex: Female

DRUGS (8)
  1. HUMULIN L [Suspect]
     Dosage: 53 U, UNK
     Dates: end: 20050501
  2. HUMULIN L [Suspect]
     Dosage: UNK, UNKNOWN
     Dates: start: 20060701
  3. HUMALOG [Suspect]
     Dosage: UNK, AS NEEDED
     Dates: start: 20050501
  4. HUMULIN R [Suspect]
     Dosage: UNK, AS NEEDED
     Dates: end: 20050501
  5. ILETIN [Suspect]
     Dosage: UNK, UNKNOWN
     Dates: start: 19560101
  6. ILETIN [Suspect]
     Dosage: UNK, AS NEEDED
     Dates: start: 19560101
  7. ILETIN [Suspect]
     Dosage: UNK, UNKNOWN
  8. LANTUS [Concomitant]
     Dosage: 60 U, DAILY (1/D)
     Dates: start: 20050501, end: 20060701

REACTIONS (15)
  - APPENDICITIS PERFORATED [None]
  - BLOOD GLUCOSE DECREASED [None]
  - BLOOD GLUCOSE INCREASED [None]
  - BURNS THIRD DEGREE [None]
  - COMA [None]
  - DIABETIC ULCER [None]
  - GLYCOSYLATED HAEMOGLOBIN INCREASED [None]
  - HYPERHIDROSIS [None]
  - LEG AMPUTATION [None]
  - LOCALISED INFECTION [None]
  - PERITONITIS [None]
  - PERONEAL NERVE PALSY [None]
  - SENSORY LOSS [None]
  - TOE AMPUTATION [None]
  - URTICARIA [None]
